FAERS Safety Report 5118599-9 (Version None)
Quarter: 2006Q4

REPORT INFORMATION
  Report Type: 
  Country: None (occurrence: None)
  Receive Date: 20061002
  Receipt Date: 20060816
  Transmission Date: 20070319
  Serious: Yes (Hospitalization)
  Sender: FDA-Public Use
  Company Number: 20060601742

PATIENT
  Age: 57 Year
  Sex: Female
  Weight: 78.2 kg

DRUGS (11)
  1. LAMIVUDINE [Suspect]
     Indication: DRUG USE FOR UNKNOWN INDICATION
     Dates: start: 20050608
  2. ZIDOVUDINE [Suspect]
     Indication: DRUG USE FOR UNKNOWN INDICATION
     Dates: start: 20050608
  3. EPOGEN [Suspect]
     Route: 058
     Dates: end: 20060301
  4. GLEEVEC [Suspect]
  5. AZT [Concomitant]
  6. TOPROL-XL [Concomitant]
     Indication: CORONARY ARTERY DISEASE
     Dosage: 50MG PER DAY
  7. TRIZIVIR [Concomitant]
  8. KALETRA [Concomitant]
     Indication: HIV INFECTION
  9. METFORMIN HCL [Concomitant]
     Indication: DIABETES MELLITUS
     Dosage: 500MG TWICE PER DAY
  10. CARDIAZEM [Concomitant]
     Indication: HYPERTENSION
     Dosage: 60MG PER DAY
  11. ALTACE [Concomitant]
     Indication: CORONARY ARTERY DISEASE
     Dosage: 10MG PER DAY

REACTIONS (7)
  - ANAEMIA [None]
  - APLASIA PURE RED CELL [None]
  - CHRONIC MYELOID LEUKAEMIA [None]
  - DRUG INTERACTION [None]
  - HEPATITIS C [None]
  - MARROW HYPERPLASIA [None]
  - THERAPEUTIC RESPONSE DECREASED [None]
